FAERS Safety Report 16839452 (Version 1)
Quarter: 2019Q3

REPORT INFORMATION
  Report Type: Spontaneous
  Country: US (occurrence: US)
  Receive Date: 20190923
  Receipt Date: 20190923
  Transmission Date: 20191005
  Serious: No
  Sender: FDA-Public Use
  Company Number: US-PFIZER INC-2019408440

PATIENT
  Age: 70 Year
  Sex: Female
  Weight: 74.83 kg

DRUGS (2)
  1. IBRANCE [Suspect]
     Active Substance: PALBOCICLIB
     Dosage: 125 MG, CYCLIC [DAILY FOR 21 DAYS ON, 7 DAYS OFF]
     Route: 048
     Dates: start: 20190209
  2. IBRANCE [Suspect]
     Active Substance: PALBOCICLIB
     Dosage: 100 MG, UNK

REACTIONS (2)
  - Tumour marker increased [Unknown]
  - Platelet count decreased [Unknown]
